FAERS Safety Report 15555265 (Version 1)
Quarter: 2018Q4

REPORT INFORMATION
  Report Type: Report from Study
  Country: DE (occurrence: DE)
  Receive Date: 20181026
  Receipt Date: 20181026
  Transmission Date: 20190205
  Serious: Yes (Other)
  Sender: FDA-Public Use
  Company Number: DE-TEVA-2018-DE-966646

PATIENT
  Age: 54 Year
  Sex: Female

DRUGS (7)
  1. CLINDAMYCIN. [Concomitant]
     Active Substance: CLINDAMYCIN
     Route: 065
  2. ANASTROZOLE. [Suspect]
     Active Substance: ANASTROZOLE
     Indication: BREAST CANCER METASTATIC
     Route: 065
  3. 5-FLUOROURACIL [Suspect]
     Active Substance: FLUOROURACIL
     Indication: BREAST CANCER METASTATIC
     Route: 065
  4. EPIRUBICIN [Suspect]
     Active Substance: EPIRUBICIN
     Indication: BREAST CANCER METASTATIC
     Route: 065
  5. IBANDRONATE [Suspect]
     Active Substance: IBANDRONATE SODIUM
     Indication: BREAST CANCER METASTATIC
     Route: 065
  6. TAMOXIFEN [Suspect]
     Active Substance: TAMOXIFEN
     Indication: BREAST CANCER METASTATIC
     Route: 065
  7. CYCLOPHOSPHAMIDE. [Suspect]
     Active Substance: CYCLOPHOSPHAMIDE
     Indication: BREAST CANCER METASTATIC
     Route: 065

REACTIONS (1)
  - Osteonecrosis of jaw [Unknown]
